FAERS Safety Report 9288135 (Version 1)
Quarter: 2013Q2

REPORT INFORMATION
  Report Type: Spontaneous
  Country: GB (occurrence: GB)
  Receive Date: 20130514
  Receipt Date: 20130514
  Transmission Date: 20140414
  Serious: Yes (Hospitalization, Other)
  Sender: FDA-Public Use
  Company Number: GB-JNJFOC-20130501367

PATIENT
  Age: 14 Year
  Sex: Female
  Weight: 46.2 kg

DRUGS (3)
  1. PARACETAMOL [Suspect]
     Indication: PRURITUS
     Dosage: 2 TABLETS
     Route: 048
     Dates: start: 20130415, end: 20130417
  2. PIRITON [Suspect]
     Indication: PRURITUS GENERALISED
     Dosage: 3 TABLETS
     Route: 048
     Dates: start: 20130415, end: 20130417
  3. PROCHLORPERAZINE MALEATE [Suspect]
     Indication: PRURITUS GENERALISED
     Dosage: 8 TABLETS
     Route: 048
     Dates: start: 20130415, end: 20130417

REACTIONS (6)
  - Agitation [Recovered/Resolved]
  - Confusional state [Recovered/Resolved]
  - Rhabdomyolysis [Recovering/Resolving]
  - Gait disturbance [Recovered/Resolved]
  - Meningitis [None]
  - Encephalitis [None]
